FAERS Safety Report 8474377-4 (Version None)
Quarter: 2012Q2

REPORT INFORMATION
  Report Type: 
  Country: None (occurrence: None)
  Receive Date: 20120628
  Receipt Date: 20120509
  Transmission Date: 20120825
  Serious: Yes (Other)
  Sender: FDA-Public Use
  Company Number: US-MYLANLABS-2012S1000326

PATIENT
  Age: 20 Year
  Sex: Female

DRUGS (8)
  1. TOPAMAX [Concomitant]
     Route: 048
  2. LORATADINE [Concomitant]
     Route: 048
  3. CLOZAPINE [Suspect]
     Route: 048
     Dates: start: 20111001, end: 20120103
  4. ORAL CONTRACEPTIVE NOS [Concomitant]
     Route: 048
  5. CLOZAPINE [Suspect]
     Route: 048
     Dates: start: 20111001, end: 20120101
  6. VITAMIN TAB [Concomitant]
     Route: 048
  7. DITROPAN [Concomitant]
     Route: 048
  8. MELATONIN [Concomitant]
     Route: 048

REACTIONS (1)
  - GRANULOCYTOPENIA [None]
